FAERS Safety Report 6055310-1 (Version None)
Quarter: 2009Q1

REPORT INFORMATION
  Report Type: 
  Country: None (occurrence: None)
  Receive Date: 20090128
  Receipt Date: 20090120
  Transmission Date: 20090719
  Serious: Yes (Hospitalization)
  Sender: FDA-Public Use
  Company Number: FR-BAYER-200911845GPV

PATIENT
  Age: 56 Year
  Sex: Female

DRUGS (2)
  1. FLUDARA [Suspect]
     Route: 042
     Dates: start: 20081116, end: 20081116
  2. THYMOGLOBULIN [Suspect]
     Route: 042
     Dates: start: 20081117, end: 20081118

REACTIONS (1)
  - SUBARACHNOID HAEMORRHAGE [None]
